FAERS Safety Report 4290365-6 (Version None)
Quarter: 2004Q1

REPORT INFORMATION
  Report Type: 
  Country: None (occurrence: None)
  Receive Date: 20040209
  Receipt Date: 20040129
  Transmission Date: 20041129
  Serious: Yes (Other)
  Sender: FDA-Public Use
  Company Number: 200312398BCC

PATIENT
  Age: 72 Year
  Sex: Female
  Weight: 77.1115 kg

DRUGS (4)
  1. E.S. BAYER BACK + BODY PAIN [Suspect]
     Indication: ARTHRITIS
     Dosage: 1000/65 MG, BID, ORAL
     Route: 048
     Dates: start: 20030623, end: 20030709
  2. ZOCOR [Concomitant]
  3. ENALAPRIL [Concomitant]
  4. HYDROCHLOROTHIAZIDE [Concomitant]

REACTIONS (3)
  - BLOOD PRESSURE INCREASED [None]
  - MYALGIA [None]
  - RED BLOOD CELL SEDIMENTATION RATE INCREASED [None]
